FAERS Safety Report 6067311 (Version 4)
Quarter: 2015Q3

REPORT INFORMATION
  Report Type: Report from Study
  Country: DE (occurrence: DE)
  Receive Date: 20060619
  Receipt Date: 20150806
  Transmission Date: 20151125
  Serious: Yes (Hospitalization, Other)
  Sender: FDA-Public Use
  Company Number: DE-NOVOPROD-253908

PATIENT
  Age: 6 Year
  Sex: Female
  Weight: 18.9 kg

DRUGS (1)
  1. NORDITROPIN [Suspect]
     Active Substance: SOMATROPIN
     Indication: TURNER^S SYNDROME
     Dosage: 0.7 MG, QD
     Route: 058
     Dates: start: 20021218

REACTIONS (1)
  - Developmental glaucoma [Recovering/Resolving]

NARRATIVE: CASE EVENT DATE: 20050627
